FAERS Safety Report 6312577-X (Version None)
Quarter: 2009Q3

REPORT INFORMATION
  Report Type: 
  Country: None (occurrence: None)
  Receive Date: 20090813
  Receipt Date: 20090805
  Transmission Date: 20100115
  Serious: Yes (Other)
  Sender: FDA-Public Use
  Company Number: 2009US002838

PATIENT
  Age: 75 Year
  Sex: Male
  Weight: 72.6 kg

DRUGS (9)
  1. LEXISCAN [Suspect]
     Indication: SCAN MYOCARDIAL PERFUSION
     Dosage: 0.4 MG, IV NOS
     Route: 042
     Dates: start: 20090713, end: 20090713
  2. TIMOLOL MALEATE (TIMOLOL MALEATE) DROP [Concomitant]
  3. BENICAR (OLMESARTAN MEDOXOMIL) TABLET [Concomitant]
  4. MULTIVITAMIN (VITAMINS NOS) TABLET [Concomitant]
  5. METOPROLOL TARTRATE (METOPROLOL TARTRATE) TABLET [Concomitant]
  6. CYMBALTA [Concomitant]
  7. XALATAN [Concomitant]
  8. ENTERIC ASPIRIN TABLET [Concomitant]
  9. ACULAR (KETOROLAC TROMETHAMINE) DROP [Concomitant]

REACTIONS (8)
  - AMNESIA [None]
  - DEPRESSED LEVEL OF CONSCIOUSNESS [None]
  - DYSPNOEA [None]
  - FATIGUE [None]
  - HYPERSENSITIVITY [None]
  - HYPOTENSION [None]
  - PALLOR [None]
  - RASH [None]
